FAERS Safety Report 9340648 (Version 1)
Quarter: 2013Q2

REPORT INFORMATION
  Report Type: Spontaneous
  Country: CA (occurrence: CA)
  Receive Date: 20130610
  Receipt Date: 20130610
  Transmission Date: 20140414
  Serious: Yes (Other)
  Sender: FDA-Public Use
  Company Number: CA-VIIV HEALTHCARE LIMITED-A1025267A

PATIENT
  Age: 18 Week
  Sex: Female

DRUGS (4)
  1. AZT [Suspect]
     Indication: HIV INFECTION
     Route: 065
  2. LAMIVUDINE-HIV [Suspect]
     Indication: HIV INFECTION
     Route: 065
  3. KALETRA [Suspect]
     Indication: HIV INFECTION
     Route: 065
  4. ZIAGEN [Suspect]
     Indication: HIV INFECTION
     Route: 065

REACTIONS (2)
  - Lactic acidosis [Unknown]
  - Bradycardia [Recovered/Resolved]
